FAERS Safety Report 5477971-8 (Version None)
Quarter: 2007Q4

REPORT INFORMATION
  Report Type: 
  Country: None (occurrence: None)
  Receive Date: 20071005
  Receipt Date: 20070925
  Transmission Date: 20080405
  Serious: Yes (Life-Threatening, Hospitalization)
  Sender: FDA-Public Use
  Company Number: JP-AMGEN-US242813

PATIENT
  Sex: Female

DRUGS (11)
  1. ENBREL [Suspect]
     Indication: RHEUMATOID ARTHRITIS
     Route: 058
     Dates: start: 20070728, end: 20070811
  2. DIOVAN [Concomitant]
     Route: 048
     Dates: start: 20070728
  3. BUCILLAMINE [Concomitant]
     Indication: RHEUMATOID ARTHRITIS
     Route: 048
     Dates: start: 20060322
  4. PROMAC [Concomitant]
     Indication: PROPHYLAXIS AGAINST GASTROINTESTINAL ULCER
     Dates: start: 20070707
  5. RISEDRONATE SODIUM [Concomitant]
     Indication: OSTEOPOROSIS PROPHYLAXIS
     Route: 048
     Dates: start: 20070728
  6. OMEPRAL [Concomitant]
     Indication: PROPHYLAXIS AGAINST GASTROINTESTINAL ULCER
     Route: 048
     Dates: start: 20070521
  7. RILMAZAFONE [Concomitant]
     Route: 048
     Dates: start: 20050712
  8. BROTIZOLAM [Concomitant]
     Route: 048
     Dates: start: 20050712
  9. ALINAMIN F [Concomitant]
     Route: 048
     Dates: start: 20050712
  10. CELECOXIB [Concomitant]
     Route: 048
     Dates: start: 20070707
  11. CILOSTAZOL [Concomitant]
     Route: 048
     Dates: start: 20070612

REACTIONS (5)
  - ALOPECIA [None]
  - ENTERITIS INFECTIOUS [None]
  - MYOCARDIAL INFARCTION [None]
  - RASH [None]
  - STOMATITIS [None]
